FAERS Safety Report 13982701 (Version 1)
Quarter: 2017Q3

REPORT INFORMATION
  Report Type: Spontaneous
  Country: US (occurrence: None)
  Receive Date: 20170915
  Receipt Date: 20170915
  Transmission Date: 20171128
  Serious: Yes (Other)
  Sender: FDA-Public Use
  Company Number: None

PATIENT
  Age: 49 Year
  Sex: Female
  Weight: 67 kg

DRUGS (2)
  1. FERROUS SULFATE, 60 MG/ML [Suspect]
     Active Substance: FERROUS SULFATE
     Route: 048
     Dates: start: 20170525, end: 20170730
  2. SENNA (SENNOSIDES A AND B) LIQUID, 1.76 MG/ML [Suspect]
     Active Substance: SENNOSIDES A AND B
     Dates: start: 20170528, end: 20170813

REACTIONS (6)
  - Product quality issue [None]
  - Pneumonia [None]
  - Critical illness [None]
  - Lung transplant [None]
  - Product contamination microbial [None]
  - Burkholderia test positive [None]

NARRATIVE: CASE EVENT DATE: 20170704
